FAERS Safety Report 18513145 (Version 2)
Quarter: 2020Q4

REPORT INFORMATION
  Report Type: Other
  Country: US (occurrence: US)
  Receive Date: 20201117
  Receipt Date: 20201126
  Transmission Date: 20210114
  Serious: Yes (Hospitalization, Other)
  Sender: FDA-Public Use
  Company Number: US-ROCHE-2700133

PATIENT
  Sex: Female
  Weight: 49.49 kg

DRUGS (12)
  1. RITUXAN [Suspect]
     Active Substance: RITUXIMAB
     Indication: NEUROMYELITIS OPTICA SPECTRUM DISORDER
     Route: 042
     Dates: start: 2009
  2. GABAPENTIN. [Concomitant]
     Active Substance: GABAPENTIN
     Indication: PARAESTHESIA
     Route: 048
     Dates: start: 2015
  3. GABAPENTIN. [Concomitant]
     Active Substance: GABAPENTIN
     Indication: PAIN
  4. RITUXAN [Suspect]
     Active Substance: RITUXIMAB
     Indication: MULTIPLE SCLEROSIS
     Dosage: ONE EVERY 6 TO 11 MONTHS
     Route: 042
     Dates: start: 2008
  5. DULOXETINE. [Concomitant]
     Active Substance: DULOXETINE
     Indication: PARAESTHESIA
     Route: 048
     Dates: start: 2007, end: 2020
  6. ZOFRAN [Concomitant]
     Active Substance: ONDANSETRON HYDROCHLORIDE
     Indication: NAUSEA
     Dosage: ONE AS NEEDED FOR NAUSEA
     Route: 048
     Dates: start: 2007
  7. XANAX [Concomitant]
     Active Substance: ALPRAZOLAM
     Indication: ANXIETY
     Dosage: ONE AS NEEDED FOR ANXIETY
     Route: 048
     Dates: start: 2007
  8. DULOXETINE. [Concomitant]
     Active Substance: DULOXETINE
     Indication: PAIN
     Route: 048
     Dates: start: 2020
  9. LYRICA [Concomitant]
     Active Substance: PREGABALIN
     Indication: PARAESTHESIA
     Route: 048
     Dates: start: 2007, end: 2015
  10. LYRICA [Concomitant]
     Active Substance: PREGABALIN
     Indication: HYPOAESTHESIA
  11. SOLIRIS [Concomitant]
     Active Substance: ECULIZUMAB
  12. HIZENTRA [Concomitant]
     Active Substance: HUMAN IMMUNOGLOBULIN G
     Indication: HYPOGAMMAGLOBULINAEMIA
     Dosage: ONE DOSE EVERY OTHER WEEK
     Route: 058
     Dates: start: 2016

REACTIONS (19)
  - Weight decreased [Unknown]
  - Hypothyroidism [Not Recovered/Not Resolved]
  - Upper respiratory tract infection [Unknown]
  - Asthenia [Unknown]
  - Off label use [Unknown]
  - Blood immunoglobulin G decreased [Unknown]
  - B-lymphocyte count decreased [Unknown]
  - Stress [Unknown]
  - Appendicitis [Recovered/Resolved with Sequelae]
  - White blood cell count increased [Recovered/Resolved]
  - Osteoporosis [Not Recovered/Not Resolved]
  - Illness [Unknown]
  - Abdominal pain [Recovered/Resolved]
  - Sepsis [Recovered/Resolved]
  - Condition aggravated [Unknown]
  - Colitis microscopic [Not Recovered/Not Resolved]
  - Gastric infection [Recovered/Resolved with Sequelae]
  - Vein disorder [Unknown]
  - Intentional product use issue [Unknown]

NARRATIVE: CASE EVENT DATE: 2008
